FAERS Safety Report 8625346-2 (Version None)
Quarter: 2012Q3

REPORT INFORMATION
  Report Type: 
  Country: None (occurrence: None)
  Receive Date: 20120827
  Receipt Date: 20120820
  Transmission Date: 20120928
  Serious: Yes (Other)
  Sender: FDA-Public Use
  Company Number: BR-PFIZER INC-2012204797

PATIENT
  Age: 78 Year
  Sex: Female
  Weight: 60 kg

DRUGS (14)
  1. LATANOPROST [Suspect]
     Indication: GLAUCOMA
     Dosage: 1X/DAY (AT NIGHT)
     Route: 047
     Dates: start: 20020101
  2. VITAMIN D [Concomitant]
     Indication: BONE DISORDER
     Dosage: 1 TABLET DAILY
     Dates: start: 20110801
  3. COMBIGAN [Concomitant]
     Indication: CATARACT
     Dosage: ONE DROP IN EACH EYE, UNSPECIFIED FREQUENCY
     Dates: start: 20020101
  4. COMBIGAN [Concomitant]
     Indication: GLAUCOMA
  5. NEUTROFER [Concomitant]
     Indication: BONE DISORDER
     Dosage: 1 TABLET, DAILY
     Dates: start: 20120201
  6. ENDOFOLIN [Concomitant]
     Indication: BONE DISORDER
     Dosage: 1 TABLET, DAILY
     Dates: start: 20110101
  7. CALCIUM [Concomitant]
     Indication: BONE DISORDER
     Dosage: 1 TABLET, DAILY
     Dates: start: 20110801
  8. METOPROLOL SUCCINATE [Concomitant]
     Indication: TACHYCARDIA
     Dosage: 1 TABLET, DAILY
     Dates: start: 20120201
  9. BENICAR [Concomitant]
     Indication: TACHYCARDIA
     Dosage: TWO TABLETS, DAILY
     Dates: start: 20110101
  10. CILOSTAZOL [Concomitant]
     Indication: SUPPLEMENTATION THERAPY
     Dosage: 1 TABLET, DAILY
     Dates: start: 20110101
  11. SERTRALINE HYDROCHLORIDE [Concomitant]
     Indication: RELAXATION THERAPY
     Dosage: 1 TABLET DAILY
     Dates: start: 20110101
  12. INDAPAMIDE [Concomitant]
     Indication: TACHYCARDIA
     Dosage: 1 TABLET, DAILY
     Dates: start: 20110101
  13. FLORINEF [Concomitant]
     Indication: SYNCOPE
     Dosage: 1 TABLET DAILY
     Dates: start: 20080101
  14. MULTI-VITAMINS [Concomitant]
     Indication: BONE DISORDER
     Dosage: 1 TABLET, DAILY
     Dates: start: 20100101

REACTIONS (2)
  - GLAUCOMA [None]
  - DEMENTIA ALZHEIMER'S TYPE [None]
